FAERS Safety Report 4630564-4 (Version None)
Quarter: 2005Q2

REPORT INFORMATION
  Report Type: 
  Country: None (occurrence: None)
  Receive Date: 20050408
  Receipt Date: 20050113
  Transmission Date: 20051028
  Serious: Yes (Hospitalization)
  Sender: FDA-Public Use
  Company Number: PHNU2005DE00547

PATIENT
  Age: 67 Year
  Sex: Male
  Weight: 72 kg

DRUGS (8)
  1. VIOXX [Suspect]
     Dosage: UNK, UNK
     Dates: start: 20031001, end: 20040301
  2. ACETYL SALICYLIC ACID USP BAT [Concomitant]
     Indication: ARTERIOSCLEROSIS
     Dosage: 1 DF, QD
     Route: 048
     Dates: start: 20000101
  3. SORTIS [Concomitant]
     Indication: HYPERLIPIDAEMIA
     Dosage: 1 DF, QD
     Route: 048
     Dates: start: 20000101, end: 20050124
  4. CONCOR [Concomitant]
     Indication: CORONARY ARTERY DISEASE
     Dosage: 1 DF, QD
     Route: 048
     Dates: start: 20000101
  5. CO-DIOVAN [Suspect]
     Indication: HYPERTENSION
     Dosage: 1 DF, QD
     Route: 048
     Dates: start: 20000101, end: 20050124
  6. ALLOPURINOL [Concomitant]
     Indication: HYPERURICAEMIA
     Route: 048
     Dates: start: 20000101, end: 20050124
  7. PREDNISOLONE [Suspect]
     Indication: POLYMYALGIA
     Dosage: 1 DF, QD
     Route: 048
     Dates: start: 20030112
  8. DIOVAN [Concomitant]
     Dosage: 0.5 DF, QD
     Route: 048
     Dates: start: 20050124

REACTIONS (4)
  - BLOOD CREATININE INCREASED [None]
  - INFECTION [None]
  - NEPHRITIS INTERSTITIAL [None]
  - PYREXIA [None]
